FAERS Safety Report 25322543 (Version 3)
Quarter: 2025Q2

REPORT INFORMATION
  Report Type: Report from Study
  Country: US (occurrence: US)
  Receive Date: 20250516
  Receipt Date: 20250529
  Transmission Date: 20250717
  Serious: No
  Sender: ABBVIE
  Company Number: US-ABBVIE-6281648

PATIENT
  Age: 77 Year
  Sex: Female

DRUGS (2)
  1. VYALEV [Suspect]
     Active Substance: FOSCARBIDOPA\FOSLEVODOPA
     Indication: Parkinson^s disease
     Route: 058
     Dates: start: 20250505, end: 20250514
  2. SINEMET [Concomitant]
     Active Substance: CARBIDOPA\LEVODOPA
     Indication: Product used for unknown indication

REACTIONS (8)
  - Musculoskeletal stiffness [Unknown]
  - Gait inability [Unknown]
  - Tremor [Unknown]
  - Device issue [Unknown]
  - Infusion site pain [Recovered/Resolved]
  - Catheter site erythema [Recovered/Resolved]
  - Unevaluable event [Unknown]
  - Fall [Recovered/Resolved]

NARRATIVE: CASE EVENT DATE: 20250501
